FAERS Safety Report 5649881-4 (Version None)
Quarter: 2008Q1

REPORT INFORMATION
  Report Type: 
  Country: None (occurrence: None)
  Receive Date: 20080304
  Receipt Date: 20080220
  Transmission Date: 20080703
  Serious: Yes (Death)
  Sender: FDA-Public Use
  Company Number: US-ELI_LILLY_AND_COMPANY-US200801005597

PATIENT
  Age: 52 Year
  Sex: Male
  Weight: 84.72 kg

DRUGS (6)
  1. CYMBALTA [Suspect]
     Indication: DEPRESSION
     Dosage: 60 MG, UNK
     Dates: start: 20071204
  2. KLONOPIN [Concomitant]
     Indication: ANXIETY
     Dosage: 2 MG, 3/D
  3. HYDROCODONE BITARTRATE [Concomitant]
     Indication: PAIN
     Dosage: 50 MG, DAILY (1/D)
  4. AMBIEN [Concomitant]
     Indication: SLEEP DISORDER
     Dosage: 10 MG, DAILY (1/D)
  5. PROVIGIL [Concomitant]
     Indication: SLEEP APNOEA SYNDROME
     Dosage: 100 MG, UNK
     Dates: start: 20071226
  6. PROVIGIL [Concomitant]
     Dosage: 200 MG, UNK
     Dates: start: 20080103

REACTIONS (2)
  - COMPLETED SUICIDE [None]
  - DEATH [None]
